FAERS Safety Report 6737752-1 (Version None)
Quarter: 2010Q2

REPORT INFORMATION
  Report Type: 
  Country: None (occurrence: None)
  Receive Date: 20100524
  Receipt Date: 20100519
  Transmission Date: 20101027
  Serious: Yes (Death)
  Sender: FDA-Public Use
  Company Number: PHHY2010US32694

PATIENT
  Sex: Male

DRUGS (5)
  1. RECLAST [Suspect]
     Indication: OSTEOPOROSIS
     Dosage: 5 MG
     Route: 042
     Dates: start: 20090101
  2. RECLAST [Suspect]
     Indication: COMPRESSION FRACTURE
  3. ACTONEL [Concomitant]
  4. SYNTHROID [Concomitant]
     Indication: HYPOTHYROIDISM
  5. ANTIHYPERTENSIVE DRUGS [Concomitant]
     Indication: HYPERTENSION

REACTIONS (3)
  - DIVERTICULUM [None]
  - GASTROINTESTINAL HAEMORRHAGE [None]
  - PNEUMONIA ASPIRATION [None]
